FAERS Safety Report 5337241-5 (Version None)
Quarter: 2007Q2

REPORT INFORMATION
  Report Type: 
  Country: None (occurrence: None)
  Receive Date: 20070529
  Receipt Date: 20070525
  Transmission Date: 20071010
  Serious: Yes (Hospitalization)
  Sender: FDA-Public Use
  Company Number: A0653071A

PATIENT
  Age: 3 Year
  Sex: Male
  Weight: 14 kg

DRUGS (5)
  1. CEFUROXIME [Suspect]
     Indication: PNEUMONIA
     Dates: start: 20060501
  2. LEVOMEPROMAZINE HYDROCHLORIDE [Concomitant]
     Dates: start: 20060101
  3. TOPIRAMATE [Concomitant]
     Dates: start: 20050801
  4. VIGABATRIN [Concomitant]
     Dates: start: 20050801
  5. PARACETAMOL [Concomitant]
     Dates: start: 20070522

REACTIONS (4)
  - BRONCHOPNEUMONIA [None]
  - DRUG INEFFECTIVE [None]
  - PHARMACEUTICAL PRODUCT COMPLAINT [None]
  - PYREXIA [None]
